FAERS Safety Report 21550927 (Version 4)
Quarter: 2023Q2

REPORT INFORMATION
  Report Type: Spontaneous
  Country: CL (occurrence: CL)
  Receive Date: 20221103
  Receipt Date: 20230411
  Transmission Date: 20230721
  Serious: Yes (Hospitalization)
  Sender: FDA-Public Use
  Company Number: CL-GLAXOSMITHKLINE-CL2022AMR135736

PATIENT

DRUGS (1)
  1. FLUTICASONE PROPIONATE [Suspect]
     Active Substance: FLUTICASONE PROPIONATE
     Indication: Asthma
     Dosage: UNK
     Dates: start: 20220919, end: 20221109

REACTIONS (9)
  - Hospitalisation [Recovered/Resolved]
  - Diaphragmatic hernia [Unknown]
  - Condition aggravated [Unknown]
  - Breath sounds abnormal [Unknown]
  - Respiration abnormal [Unknown]
  - Hernia diaphragmatic repair [Unknown]
  - Therapy interrupted [Not Recovered/Not Resolved]
  - Product use issue [Unknown]
  - Product prescribing issue [Unknown]

NARRATIVE: CASE EVENT DATE: 20221012
